FAERS Safety Report 9643912 (Version 3)
Quarter: 2014Q2

REPORT INFORMATION
  Report Type: Spontaneous
  Country: GB (occurrence: None)
  Receive Date: 20131023
  Receipt Date: 20140506
  Transmission Date: 20141212
  Serious: Yes (Other)
  Sender: FDA-Public Use
  Company Number: AUR-APL-2013-08721

PATIENT
  Age: 37 Year
  Sex: Female

DRUGS (1)
  1. LEVETIRACETAM [Suspect]
     Indication: EPILEPSY

REACTIONS (4)
  - Dissociation [None]
  - Psychogenic seizure [None]
  - Panic reaction [None]
  - Epilepsy [None]
